FAERS Safety Report 9465196 (Version 2)
Quarter: 2014Q1

REPORT INFORMATION
  Report Type: Spontaneous
  Country: CA (occurrence: CA)
  Receive Date: 20130819
  Receipt Date: 20140113
  Transmission Date: 20141002
  Serious: Yes (Death, Hospitalization, Other)
  Sender: FDA-Public Use
  Company Number: CA-GILEAD-2013-0081571

PATIENT
  Age: 44 Year
  Sex: Female

DRUGS (6)
  1. AMBRISENTAN [Suspect]
     Indication: PULMONARY ARTERIAL HYPERTENSION
     Dosage: 10 MG, UNK
     Route: 065
     Dates: start: 20130705
  2. FUROSEMIDE [Concomitant]
  3. SPIRONOLACTONE [Concomitant]
  4. OLANZAPINE [Concomitant]
  5. ELTROXIN [Concomitant]
  6. GEM K 20 [Concomitant]

REACTIONS (2)
  - Death [Fatal]
  - Dyspnoea [Unknown]
